FAERS Safety Report 5298007-8 (Version None)
Quarter: 2007Q2

REPORT INFORMATION
  Report Type: 
  Country: None (occurrence: None)
  Receive Date: 20070416
  Receipt Date: 20070403
  Transmission Date: 20071010
  Serious: Yes (Hospitalization)
  Sender: FDA-Public Use
  Company Number: JP-ROCHE-491246

PATIENT
  Age: 50 Year
  Sex: Female

DRUGS (1)
  1. INTERFERON ALFA [Suspect]
     Route: 065
     Dates: start: 19920813

REACTIONS (2)
  - SUICIDE ATTEMPT [None]
  - THERMAL BURN [None]
